FAERS Safety Report 9699114 (Version 1)
Quarter: 2013Q4

REPORT INFORMATION
  Report Type: Spontaneous
  Country: IT (occurrence: IT)
  Receive Date: 20131120
  Receipt Date: 20131120
  Transmission Date: 20140711
  Serious: Yes (Hospitalization)
  Sender: FDA-Public Use
  Company Number: IT-ASTRAZENECA-2013SE83512

PATIENT
  Age: 27085 Day
  Sex: Male

DRUGS (8)
  1. TICAGREROL [Suspect]
     Indication: THROMBOSIS PROPHYLAXIS
     Route: 048
     Dates: start: 20131004, end: 20131015
  2. CARDIOASPIRIN [Suspect]
     Indication: THROMBOSIS PROPHYLAXIS
     Route: 048
     Dates: start: 20131004, end: 20131107
  3. CARDIOASPIRIN [Suspect]
     Indication: THROMBOSIS PROPHYLAXIS
     Route: 048
     Dates: start: 201311
  4. PANTOPRAZOLE [Concomitant]
     Dates: start: 20131004, end: 20131107
  5. PANTOPRAZOLE [Concomitant]
     Dosage: INCREASED DOSE
  6. ATORVASTATIN [Concomitant]
     Dates: start: 20131004, end: 20131107
  7. CARVEDILOL [Concomitant]
  8. ENALAPRIL [Concomitant]

REACTIONS (4)
  - Anaemia [Recovered/Resolved]
  - Duodenal ulcer [Recovered/Resolved]
  - Melaena [Recovered/Resolved]
  - Rectal haemorrhage [Recovered/Resolved]
